FAERS Safety Report 9369448 (Version 1)
Quarter: 2013Q2

REPORT INFORMATION
  Report Type: Report from Study
  Country: US (occurrence: US)
  Receive Date: 20130626
  Receipt Date: 20130626
  Transmission Date: 20140414
  Serious: Yes (Death, Hospitalization)
  Sender: FDA-Public Use
  Company Number: PHHO2013US008464

PATIENT
  Age: 86 Year
  Sex: Male

DRUGS (5)
  1. ZOLEDRONATE [Suspect]
     Indication: PROSTATE CANCER METASTATIC
  2. ZYTIGA [Concomitant]
  3. PREDNISONE [Concomitant]
  4. CALCIUM [Concomitant]
     Dosage: UNK
  5. VITAMIN D [Concomitant]

REACTIONS (2)
  - Pneumonia bacterial [Fatal]
  - Myocardial infarction [Unknown]
